FAERS Safety Report 15285677 (Version 1)
Quarter: 2018Q3

REPORT INFORMATION
  Report Type: Spontaneous
  Country: US (occurrence: US)
  Receive Date: 20180802
  Receipt Date: 20180802
  Transmission Date: 20181010
  Serious: No
  Sender: FDA-Public Use
  Company Number: None

PATIENT
  Age: 59 Year
  Sex: Male

DRUGS (9)
  1. XOLAIR [Suspect]
     Active Substance: OMALIZUMAB
     Indication: CHRONIC OBSTRUCTIVE PULMONARY DISEASE
     Dosage: ?          OTHER FREQUENCY:EVERY 4 WEEKS;?
     Route: 058
     Dates: start: 20180622
  2. XOLAIR [Suspect]
     Active Substance: OMALIZUMAB
     Indication: ASTHMA
     Dosage: ?          OTHER FREQUENCY:EVERY 4 WEEKS;?
     Route: 058
     Dates: start: 20180622
  3. IREBSARTAN 150MG [Concomitant]
     Dates: start: 20170526
  4. SPIRIVA [Concomitant]
     Active Substance: TIOTROPIUM BROMIDE MONOHYDRATE
     Dates: start: 20170607
  5. PANTOPRAZOLE 40MG [Concomitant]
     Active Substance: PANTOPRAZOLE SODIUM
     Dates: start: 20160915
  6. AMLODIPINE [Concomitant]
     Active Substance: AMLODIPINE BESYLATE
     Dates: start: 20091231
  7. ROSUVASTATIN 20MG [Concomitant]
     Active Substance: ROSUVASTATIN
     Dates: start: 20170512
  8. OMEGA?3 ACID 1GM [Concomitant]
     Dates: start: 20161128
  9. DOXYCYCLINE MONOHYDRATE 100MG [Concomitant]
     Dates: start: 20160414

REACTIONS (1)
  - Off label use [None]

NARRATIVE: CASE EVENT DATE: 20180622
